FAERS Safety Report 18101041 (Version 1)
Quarter: 2020Q3

REPORT INFORMATION
  Report Type: Spontaneous
  Country: AT (occurrence: AT)
  Receive Date: 20200731
  Receipt Date: 20200731
  Transmission Date: 20201103
  Serious: Yes (Other)
  Sender: FDA-Public Use
  Company Number: AT-BAXTER-2020BAX015684

PATIENT
  Sex: Female
  Weight: 58 kg

DRUGS (5)
  1. DOXIL [Suspect]
     Active Substance: DOXORUBICIN HYDROCHLORIDE
     Indication: ANAPLASTIC LARGE-CELL LYMPHOMA
     Dosage: 6 CYCLES ADMINISTERED TOTAL; CHP REGIMEN; CYCLICAL
     Route: 065
  2. ADCETRIS [Suspect]
     Active Substance: BRENTUXIMAB VEDOTIN
     Indication: ANAPLASTIC LARGE-CELL LYMPHOMA
     Dosage: 6 CYCLES ADMINISTERED TOTAL; CHP REGIMEN; CYCLICAL
     Route: 065
  3. PREDNISONE. [Suspect]
     Active Substance: PREDNISONE
     Indication: ANAPLASTIC LARGE-CELL LYMPHOMA
     Dosage: 6 CYCLES ADMINISTERED TOTAL; CHP REGIMEN; CYCLICAL
     Route: 065
  4. GRANULOCYTE COLONY STIMULATING FACTOR [Concomitant]
     Active Substance: GRANULOCYTE COLONY-STIMULATING FACTOR NOS
     Indication: PROPHYLAXIS
     Dosage: ONLY PROPHYLACTIC
     Route: 065
  5. ENDOXAN [Suspect]
     Active Substance: CYCLOPHOSPHAMIDE
     Indication: ANAPLASTIC LARGE-CELL LYMPHOMA
     Dosage: 6 CYCLES ADMINISTERED TOTAL; CHP REGIMEN; CYCLICAL
     Route: 065

REACTIONS (4)
  - Decreased appetite [Unknown]
  - Nausea [Unknown]
  - Polyneuropathy [Unknown]
  - Weight decreased [Recovered/Resolved]
